FAERS Safety Report 11270164 (Version 5)
Quarter: 2015Q3

REPORT INFORMATION
  Report Type: Report from Study
  Country: US (occurrence: US)
  Receive Date: 20150714
  Receipt Date: 20150918
  Transmission Date: 20151125
  Serious: Yes (Hospitalization, Other)
  Sender: FDA-Public Use
  Company Number: US-GILEAD-2015-0162907

PATIENT
  Age: 56 Year
  Sex: Female

DRUGS (6)
  1. SILDENAFIL. [Concomitant]
     Active Substance: SILDENAFIL
  2. AMBRISENTAN [Suspect]
     Active Substance: AMBRISENTAN
     Indication: PULMONARY ARTERIAL HYPERTENSION
     Dosage: 10 UNK, UNK
     Route: 065
     Dates: start: 20131114
  3. FLOLAN [Concomitant]
     Active Substance: EPOPROSTENOL SODIUM
  4. REVATIO [Concomitant]
     Active Substance: SILDENAFIL CITRATE
  5. COUMADINE [Concomitant]
     Active Substance: WARFARIN SODIUM
  6. AMBRISENTAN [Suspect]
     Active Substance: AMBRISENTAN
     Indication: PULMONARY ARTERIAL HYPERTENSION
     Dosage: 5 MG, QD
     Route: 065
     Dates: start: 20131114

REACTIONS (4)
  - Central venous catheterisation [Unknown]
  - Hypotension [Unknown]
  - Sepsis [Unknown]
  - Device related infection [Unknown]
